FAERS Safety Report 7167570-4 (Version None)
Quarter: 2010Q4

REPORT INFORMATION
  Report Type: 
  Country: None (occurrence: None)
  Receive Date: 20101216
  Receipt Date: 20100409
  Transmission Date: 20110411
  Serious: No
  Sender: FDA-Public Use
  Company Number: A0854430A

PATIENT
  Age: 79 Year
  Sex: Male

DRUGS (2)
  1. COMMIT [Suspect]
  2. NICOTINE POLACRILEX [Suspect]

REACTIONS (1)
  - BLOOD GLUCOSE INCREASED [None]
